FAERS Safety Report 11045688 (Version 1)
Quarter: 2015Q2

REPORT INFORMATION
  Report Type: Spontaneous
  Country: DE (occurrence: DE)
  Receive Date: 20150417
  Receipt Date: 20150417
  Transmission Date: 20150821
  Serious: Yes (Other)
  Sender: FDA-Public Use
  Company Number: DE-MYLANLABS-2015M1012805

PATIENT

DRUGS (3)
  1. ISOTRETINOIN [Interacting]
     Active Substance: ISOTRETINOIN
     Indication: ACNE
     Route: 065
  2. ITRACONAZOLE. [Suspect]
     Active Substance: ITRACONAZOLE
     Indication: ANTIFUNGAL PROPHYLAXIS
     Dosage: INCREASED AT 19YRS FOLLOWING UNTRACEABLE LEVELS
     Route: 065
  3. COTRIMOXAZOLE [Concomitant]
     Active Substance: SULFAMETHOXAZOLE\TRIMETHOPRIM
     Route: 065

REACTIONS (2)
  - Bronchopulmonary aspergillosis [Recovering/Resolving]
  - Drug interaction [Recovering/Resolving]
